FAERS Safety Report 7908810-0 (Version None)
Quarter: 2011Q4

REPORT INFORMATION
  Report Type: 
  Country: None (occurrence: None)
  Receive Date: 20111111
  Receipt Date: 20111031
  Transmission Date: 20120403
  Serious: Yes (Hospitalization)
  Sender: FDA-Public Use
  Company Number: US-BAYER-2011-050093

PATIENT
  Age: 49 Year
  Sex: Female
  Weight: 65.76 kg

DRUGS (5)
  1. BETA BLOCKING AGENTS [Concomitant]
  2. YASMIN [Suspect]
     Indication: ORAL CONTRACEPTION
     Dosage: UNK
     Dates: start: 20050101, end: 20090601
  3. BISOPROLOL FUMARATE AND HYDROCHLOROTHIAZIDE [Concomitant]
  4. YAZ [Suspect]
     Indication: ORAL CONTRACEPTION
     Dosage: UNK
     Dates: start: 20050101, end: 20090601
  5. BETA BLOCKING AGENTS [Concomitant]

REACTIONS (2)
  - MYOCARDIAL INFARCTION [None]
  - INJURY [None]
